FAERS Safety Report 24135378 (Version 2)
Quarter: 2024Q3

REPORT INFORMATION
  Report Type: Spontaneous
  Country: US (occurrence: US)
  Receive Date: 20240725
  Receipt Date: 20240809
  Transmission Date: 20241017
  Serious: Yes (Other)
  Sender: BRISTOL MYERS SQUIBB
  Company Number: US-BRISTOL-MYERS SQUIBB COMPANY-2024-115302

PATIENT
  Age: 77 Year
  Sex: Female

DRUGS (3)
  1. REVLIMID [Suspect]
     Active Substance: LENALIDOMIDE
     Indication: Myelodysplastic syndrome with single lineage dysplasia
     Dosage: DOSE : 10MG | 2.5MG;     FREQ : UNAVAILABLE
     Dates: start: 202103
  2. REVLIMID [Suspect]
     Active Substance: LENALIDOMIDE
  3. VIDAZA [Suspect]
     Active Substance: AZACITIDINE
     Indication: Product used for unknown indication

REACTIONS (3)
  - Oral disorder [Unknown]
  - Drug ineffective [Unknown]
  - Off label use [Unknown]
